FAERS Safety Report 8508847-7 (Version None)
Quarter: 2012Q3

REPORT INFORMATION
  Report Type: 
  Country: None (occurrence: None)
  Receive Date: 20120713
  Receipt Date: 20120705
  Transmission Date: 20120928
  Serious: No
  Sender: FDA-Public Use
  Company Number: US-PFIZER INC-2012159152

PATIENT
  Sex: Female
  Weight: 61 kg

DRUGS (6)
  1. PANTOPRAZOLE [Suspect]
     Indication: DYSPEPSIA
     Dosage: 40 MG, TWO TIMES DAILY
     Dates: start: 20110101
  2. CALCIUM [Concomitant]
     Dosage: 600 MG, DAILY
  3. ERGOCALCIFEROL [Concomitant]
     Indication: VITAMIN D DEFICIENCY
     Dosage: 1.25 MG,  ONCE A MONTH
  4. BENICAR [Concomitant]
     Indication: HYPERTENSION
     Dosage: 20 MG, DAILY
  5. VITAMIN B-12 [Concomitant]
     Dosage: 1000 MG, DAILY
  6. ASPIRIN [Concomitant]
     Indication: THROMBOSIS
     Dosage: 325 MG, DAILY

REACTIONS (3)
  - DRUG INEFFECTIVE [None]
  - PHARYNGEAL DISORDER [None]
  - ANORECTAL DISORDER [None]
